FAERS Safety Report 7545105-1 (Version None)
Quarter: 2011Q2

REPORT INFORMATION
  Report Type: 
  Country: None (occurrence: None)
  Receive Date: 20110606
  Receipt Date: 20110523
  Transmission Date: 20111010
  Serious: Yes (Hospitalization)
  Sender: FDA-Public Use
  Company Number: 2011P1006729

PATIENT
  Age: 84 Year
  Sex: Female
  Weight: 47.1741 kg

DRUGS (7)
  1. WARFARIN SODIUM [Suspect]
     Indication: ATRIAL FIBRILLATION
     Dosage: 1 TABLET;QD;PO
     Route: 048
     Dates: start: 20101101, end: 20110415
  2. WARFARIN SODIUM [Suspect]
     Indication: CARDIAC DISORDER
     Dosage: 1 TABLET;QD;PO
     Route: 048
     Dates: start: 20101101, end: 20110415
  3. ISOSORBIDE DINITRATE [Concomitant]
  4. ASPIRIN [Suspect]
     Dates: start: 20110422, end: 20110512
  5. ASPIRIN [Suspect]
     Dates: start: 20110520
  6. LABETALOL HCL [Concomitant]
  7. PRILOSEC [Suspect]

REACTIONS (3)
  - FATIGUE [None]
  - EPISTAXIS [None]
  - FAECES DISCOLOURED [None]
